FAERS Safety Report 5355718-3 (Version None)
Quarter: 2007Q2

REPORT INFORMATION
  Report Type: 
  Country: None (occurrence: None)
  Receive Date: 20070613
  Receipt Date: 20070604
  Transmission Date: 20071010
  Serious: Yes (Hospitalization)
  Sender: FDA-Public Use
  Company Number: US-AVENTIS-200710421US

PATIENT
  Age: 52 Year
  Sex: Female

DRUGS (11)
  1. LANTUS [Suspect]
     Route: 051
     Dates: start: 20061228, end: 20070101
  2. LANTUS [Suspect]
     Dates: start: 20070501
  3. LANTUS [Suspect]
     Dates: start: 20070101
  4. HUMALOG [Suspect]
     Dosage: DOSE: SLIDING SCALE, 4 UNITS
     Dates: start: 20061201
  5. HUMALOG [Concomitant]
     Dosage: DOSE: UNKNOWN
  6. SYNTHROID [Concomitant]
  7. LISINOPRIL [Concomitant]
  8. GLUCOPHAGE [Concomitant]
     Dosage: DOSE: UNK
  9. LIPITOR [Concomitant]
  10. HYOSCYAMINE [Concomitant]
     Dosage: DOSE: UNK
  11. NEXIUM [Concomitant]
     Dosage: DOSE: UNK

REACTIONS (5)
  - BLOOD GLUCOSE DECREASED [None]
  - BLOOD GLUCOSE INCREASED [None]
  - CHEST DISCOMFORT [None]
  - CHEST PAIN [None]
  - GASTROOESOPHAGEAL REFLUX DISEASE [None]
